FAERS Safety Report 9099423 (Version 2)
Quarter: 2013Q4

REPORT INFORMATION
  Report Type: Spontaneous
  Country: GB (occurrence: GB)
  Receive Date: 20130214
  Receipt Date: 20131003
  Transmission Date: 20140711
  Serious: Yes (Other)
  Sender: FDA-Public Use
  Company Number: PHFR2013GB001169

PATIENT
  Sex: 0

DRUGS (8)
  1. RIVASTIGMINE [Suspect]
     Indication: DEMENTIA ALZHEIMER^S TYPE
     Dosage: 4.6 MG, DAILY
     Route: 062
     Dates: start: 20121127
  2. INFLUENZA VIRUS [Concomitant]
     Dosage: UNK UKN, UNK
     Dates: start: 20121113
  3. CITALOPRAM [Concomitant]
     Dosage: 20 MG, UNK
     Dates: start: 20121126
  4. LANSOPRAZOLE [Concomitant]
     Dosage: 30 MG, UNK
     Dates: start: 20121126
  5. AZATHIOPRINE [Concomitant]
     Dosage: 50 MG, UNK
     Dates: start: 20121126
  6. CALCEOS [Concomitant]
     Dosage: UNK UKN, UNK
     Dates: start: 20121126
  7. HYPROMELLOSE [Concomitant]
     Dosage: UNK UKN, UNK
     Dates: start: 20121128, end: 20121226
  8. DIPROBASE [Concomitant]
     Dosage: UNK UKN, UNK
     Dates: start: 20121128, end: 20121226

REACTIONS (1)
  - Colitis ulcerative [Unknown]
